FAERS Safety Report 18042576 (Version 10)
Quarter: 2024Q2

REPORT INFORMATION
  Report Type: Report from Study
  Country: US (occurrence: US)
  Receive Date: 20200720
  Receipt Date: 20240410
  Transmission Date: 20240716
  Serious: Yes (Hospitalization, Other)
  Sender: FDA-Public Use
  Company Number: US-ACADIA PHARMACEUTICALS INC.-ACA-2020-PIM-002284

PATIENT
  Age: 72 Year
  Sex: Female

DRUGS (34)
  1. NUPLAZID [Suspect]
     Active Substance: PIMAVANSERIN TARTRATE
     Indication: Parkinson^s disease
     Dosage: 34 MILLIGRAM, QD
     Route: 048
     Dates: start: 20200224, end: 20200704
  2. NUPLAZID [Suspect]
     Active Substance: PIMAVANSERIN TARTRATE
     Dosage: 34 MILLIGRAM
     Route: 048
     Dates: start: 2020
  3. NUPLAZID [Suspect]
     Active Substance: PIMAVANSERIN TARTRATE
     Dosage: 34 MILLIGRAM
     Route: 048
  4. NUPLAZID [Suspect]
     Active Substance: PIMAVANSERIN TARTRATE
     Dosage: 34 MILLIGRAM
     Route: 048
  5. PREDNISONE [Concomitant]
     Active Substance: PREDNISONE
     Indication: Product used for unknown indication
  6. CYCLOBENZAPRINE HYDROCHLORIDE [Concomitant]
     Active Substance: CYCLOBENZAPRINE HYDROCHLORIDE
     Indication: Product used for unknown indication
  7. VITAMIN D2 [Concomitant]
     Active Substance: ERGOCALCIFEROL
  8. SPIRONOLACTONE [Concomitant]
     Active Substance: SPIRONOLACTONE
  9. TORSEMIDE [Concomitant]
     Active Substance: TORSEMIDE
  10. RISA-BID [Concomitant]
  11. CALCIUM +D [CALCIUM CARBONATE;COLECALCIFEROL] [Concomitant]
  12. ZONEGRAN [Concomitant]
     Active Substance: ZONISAMIDE
  13. KEPPRA [Concomitant]
     Active Substance: LEVETIRACETAM
  14. METFORMIN [Concomitant]
     Active Substance: METFORMIN HYDROCHLORIDE
  15. DOXEPIN [Concomitant]
     Active Substance: DOXEPIN
  16. PRAVASTATIN [Concomitant]
     Active Substance: PRAVASTATIN
  17. DULOXETINE [Concomitant]
     Active Substance: DULOXETINE
  18. PREGABALIN [Concomitant]
     Active Substance: PREGABALIN
  19. AMLODIPINE [Concomitant]
     Active Substance: AMLODIPINE BESYLATE
  20. AMANTADINE [Concomitant]
     Active Substance: AMANTADINE
  21. DICYCLOMINE [Concomitant]
     Active Substance: DICYCLOMINE HYDROCHLORIDE
  22. MODAFINIL [Concomitant]
     Active Substance: MODAFINIL
  23. BREO ELLIPTA [Concomitant]
     Active Substance: FLUTICASONE FUROATE\VILANTEROL TRIFENATATE
  24. TRESIBA [Concomitant]
     Active Substance: INSULIN DEGLUDEC
  25. FLONASE [Concomitant]
     Active Substance: FLUTICASONE PROPIONATE
  26. LYRICA [Concomitant]
     Active Substance: PREGABALIN
  27. CALCIUM CARBONATE [Concomitant]
     Active Substance: CALCIUM CARBONATE
  28. SINGULAIR [Concomitant]
     Active Substance: MONTELUKAST SODIUM
  29. CENTRUM GENDER [Concomitant]
  30. CALCIUM [Concomitant]
     Active Substance: CALCIUM
  31. ALLOPURINOL [Concomitant]
     Active Substance: ALLOPURINOL
  32. VALSARTAN [Concomitant]
     Active Substance: VALSARTAN
  33. CENTRUM SILVER [ASCORBIC ACID;CALCIUM;MINERALS NOS;RETINOL;TOCOPHERYL [Concomitant]
  34. AMLODIPINE BESYLATE [Concomitant]
     Active Substance: AMLODIPINE BESYLATE

REACTIONS (20)
  - Electric shock sensation [Unknown]
  - Headache [Unknown]
  - Dehydration [Unknown]
  - Chronic obstructive pulmonary disease [Unknown]
  - Acute kidney injury [Recovered/Resolved]
  - Joint injury [Unknown]
  - Limb injury [Unknown]
  - Neuropathy peripheral [Unknown]
  - Pneumonia [Recovered/Resolved]
  - COVID-19 [Recovered/Resolved]
  - Fall [Unknown]
  - Balance disorder [Unknown]
  - Diplopia [Unknown]
  - Feeding disorder [Unknown]
  - Muscle spasms [Unknown]
  - Illness [Unknown]
  - COVID-19 [Unknown]
  - Product dose omission issue [Unknown]
  - Product dose omission issue [Recovered/Resolved]
  - Fall [Unknown]

NARRATIVE: CASE EVENT DATE: 20200701
